FAERS Safety Report 13157044 (Version 2)
Quarter: 2017Q3

REPORT INFORMATION
  Report Type: Spontaneous
  Country: JP (occurrence: JP)
  Receive Date: 20170127
  Receipt Date: 20170720
  Transmission Date: 20171127
  Serious: Yes (Disabling, Other)
  Sender: FDA-Public Use
  Company Number: JP-AMGEN-JPNSP2017012843

PATIENT
  Age: 46 Year
  Sex: Female
  Weight: 49 kg

DRUGS (7)
  1. RANMARK [Suspect]
     Active Substance: DENOSUMAB
     Indication: METASTASES TO BONE
     Dosage: 120 MG, Q4WK
     Route: 058
     Dates: start: 20140312, end: 20151030
  2. PARAPLATIN [Concomitant]
     Active Substance: CARBOPLATIN
     Dosage: 548 MG, QID
     Route: 042
     Dates: start: 20150605
  3. CYRAMZA [Concomitant]
     Active Substance: RAMUCIRUMAB
     Dosage: 490 MG, 15 TMS EVERY 1D
     Route: 042
     Dates: start: 20160812
  4. RANMARK [Suspect]
     Active Substance: DENOSUMAB
     Dosage: UNK
     Route: 065
  5. ALIMTA [Concomitant]
     Active Substance: PEMETREXED DISODIUM
     Dosage: 721 MG, QID
     Route: 042
     Dates: start: 20150605, end: 20150814
  6. OPDIVO [Concomitant]
     Active Substance: NIVOLUMAB
     Dosage: 150 MG, 6 TMS EVERY 1D
     Route: 042
     Dates: start: 20160226
  7. ONETAXOTERE [Concomitant]
     Active Substance: DOCETAXEL
     Dosage: 89 MG, Q2WK
     Route: 042
     Dates: start: 20160812

REACTIONS (1)
  - Osteonecrosis of jaw [Recovered/Resolved]

NARRATIVE: CASE EVENT DATE: 201511
